FAERS Safety Report 6612860-4 (Version None)
Quarter: 2010Q1

REPORT INFORMATION
  Report Type: 
  Country: None (occurrence: None)
  Receive Date: 20100303
  Receipt Date: 20100223
  Transmission Date: 20100710
  Serious: Yes (Hospitalization, Disabling, Other)
  Sender: FDA-Public Use
  Company Number: US-MERCK-0902USA01599

PATIENT
  Age: 39 Year
  Sex: Female

DRUGS (14)
  1. FOSAMAX [Suspect]
     Indication: PREMATURE MENOPAUSE
     Route: 048
     Dates: start: 20050101, end: 20070101
  2. FOSAMAX [Suspect]
     Indication: OSTEOPOROSIS PROPHYLAXIS
     Route: 048
     Dates: start: 20050101, end: 20070101
  3. FOSAMAX PLUS D [Suspect]
     Route: 048
     Dates: start: 20050101, end: 20070101
  4. ACTONEL [Concomitant]
     Route: 065
     Dates: start: 20050101, end: 20050101
  5. ATENOLOL [Concomitant]
     Route: 065
     Dates: start: 20020101
  6. ZESTRIL [Concomitant]
     Route: 065
     Dates: start: 19990101
  7. PLAQUENIL [Concomitant]
     Route: 065
     Dates: start: 19990101
  8. NEURONTIN [Concomitant]
     Route: 065
     Dates: start: 19990101
  9. AMBIEN [Concomitant]
     Route: 065
     Dates: start: 20020101
  10. XANAX [Concomitant]
     Route: 065
     Dates: start: 19990101
  11. SOMA [Concomitant]
     Route: 065
     Dates: start: 19990101
  12. DARVOCET-N 100 [Concomitant]
     Route: 065
     Dates: start: 19990101
  13. METHOTREXATE [Concomitant]
     Route: 065
     Dates: start: 20020101
  14. FOLIC ACID [Concomitant]
     Route: 065
     Dates: start: 20020101

REACTIONS (25)
  - ABSCESS [None]
  - ADVERSE EVENT [None]
  - ALVEOLAR OSTEITIS [None]
  - ANXIETY [None]
  - APHTHOUS STOMATITIS [None]
  - ARTHROPATHY [None]
  - BACK PAIN [None]
  - CELLULITIS [None]
  - CONCUSSION [None]
  - DEPRESSION [None]
  - DRUG HYPERSENSITIVITY [None]
  - EPISTAXIS [None]
  - EXOSTOSIS [None]
  - FALL [None]
  - FOOT FRACTURE [None]
  - FUNGAL INFECTION [None]
  - HEADACHE [None]
  - JAW DISORDER [None]
  - MUSCULOSKELETAL PAIN [None]
  - OSTEOARTHRITIS [None]
  - OSTEOMYELITIS [None]
  - OSTEONECROSIS [None]
  - RENAL DISORDER [None]
  - VIRAL INFECTION [None]
  - WRIST FRACTURE [None]
